FAERS Safety Report 14281586 (Version 2)
Quarter: 2019Q1

REPORT INFORMATION
  Report Type: Spontaneous
  Country: US (occurrence: US)
  Receive Date: 20171213
  Receipt Date: 20190111
  Transmission Date: 20190417
  Serious: No
  Sender: FDA-Public Use
  Company Number: US-PFIZER INC-2017532682

PATIENT
  Age: 57 Year
  Sex: Female

DRUGS (5)
  1. MORPHINE SULFATE. [Suspect]
     Active Substance: MORPHINE SULFATE
     Dosage: UNK
  2. BUPROPION. [Suspect]
     Active Substance: BUPROPION
     Dosage: UNK
  3. NIFEDIPINE. [Suspect]
     Active Substance: NIFEDIPINE
     Dosage: UNK
  4. PROLACT [Suspect]
     Active Substance: CABERGOLINE
     Dosage: UNK
  5. CYMBALTA [Suspect]
     Active Substance: DULOXETINE HYDROCHLORIDE
     Dosage: UNK

REACTIONS (1)
  - Drug hypersensitivity [Unknown]
